FAERS Safety Report 6092620-6 (Version None)
Quarter: 2009Q1

REPORT INFORMATION
  Report Type: 
  Country: None (occurrence: None)
  Receive Date: 20090223
  Receipt Date: 20090223
  Transmission Date: 20090719
  Serious: Yes (Life-Threatening)
  Sender: FDA-Public Use
  Company Number: None

PATIENT
  Age: 47 Year
  Sex: Male
  Weight: 112.4921 kg

DRUGS (3)
  1. LYRICA [Suspect]
     Indication: JOINT INJURY
     Dosage: ? ?
  2. LYRICA [Suspect]
     Indication: LIMB INJURY
     Dosage: ? ?
  3. LYRICA [Suspect]
     Indication: PAIN IN EXTREMITY
     Dosage: ? ?

REACTIONS (3)
  - CRYING [None]
  - DEPRESSED MOOD [None]
  - FEELING ABNORMAL [None]
